FAERS Safety Report 4809369-7 (Version None)
Quarter: 2005Q4

REPORT INFORMATION
  Report Type: 
  Country: None (occurrence: None)
  Receive Date: 20051021
  Receipt Date: 20051006
  Transmission Date: 20060501
  Serious: Yes (Life-Threatening)
  Sender: FDA-Public Use
  Company Number: JP-2005-018209

PATIENT
  Age: 70 Year
  Sex: Male

DRUGS (7)
  1. PROSCOPE                             (IOPROMIDE) [Suspect]
     Indication: COMPUTERISED TOMOGRAM ABDOMEN
     Dosage: 100 ML, IV BOLUS
     Route: 040
     Dates: start: 20050825, end: 20050825
  2. KN-3B [Concomitant]
  3. HEPAN ED (AMINO ACIDS NOS, VITAMINS NOS) [Concomitant]
  4. MONILAC (LACTULOSE) [Concomitant]
  5. ROCEPHIN [Concomitant]
  6. CATACLOT (OZAGREL SODIUM) [Concomitant]
  7. RADICUT (EDARAVONE) [Concomitant]

REACTIONS (11)
  - ACUTE RESPIRATORY DISTRESS SYNDROME [None]
  - ANAPHYLACTIC SHOCK [None]
  - BLOOD PRESSURE DECREASED [None]
  - COUGH [None]
  - DEPRESSED LEVEL OF CONSCIOUSNESS [None]
  - ECZEMA [None]
  - LARYNGEAL OEDEMA [None]
  - RASH [None]
  - RESPIRATORY FAILURE [None]
  - SNEEZING [None]
  - SWELLING FACE [None]
